FAERS Safety Report 6212683-4 (Version None)
Quarter: 2009Q2

REPORT INFORMATION
  Report Type: 
  Country: None (occurrence: None)
  Receive Date: 20090603
  Receipt Date: 20070814
  Transmission Date: 20091009
  Serious: Yes (Other)
  Sender: FDA-Public Use
  Company Number: US-ASTRAZENECA-2006UW26396

PATIENT
  Age: 18571 Day
  Sex: Female
  Weight: 70.8 kg

DRUGS (10)
  1. SEROQUEL [Suspect]
     Indication: INSOMNIA
     Dosage: 25 MG-350 MG
     Route: 048
     Dates: start: 20060407, end: 20061218
  2. SEROQUEL [Suspect]
     Route: 048
  3. CLOZARIL [Concomitant]
  4. GEODON [Concomitant]
  5. THORAZINE [Concomitant]
  6. FLUOXETINE HCL [Concomitant]
  7. LISINOPRIL [Concomitant]
     Dosage: 10 MG-20 MG EVERYDAY
     Dates: start: 20060315
  8. GLUCOVANCE [Concomitant]
     Dosage: 1.25/250 MG 3 TABLETS TWO TIMES A DAY
     Dates: start: 20060315
  9. CLONAZEPAM [Concomitant]
     Dosage: 1 MG-3 MG
     Dates: start: 20060407
  10. RANITIDINE [Concomitant]
     Dates: start: 20060322

REACTIONS (3)
  - DIABETES MELLITUS [None]
  - DIABETES MELLITUS INADEQUATE CONTROL [None]
  - NEUROPATHY PERIPHERAL [None]
